FAERS Safety Report 4978387-0 (Version None)
Quarter: 2006Q2

REPORT INFORMATION
  Report Type: 
  Country: None (occurrence: None)
  Receive Date: 20060417
  Receipt Date: 20060405
  Transmission Date: 20061013
  Serious: Yes (Hospitalization, Other)
  Sender: FDA-Public Use
  Company Number: HQWYE673006APR06

PATIENT
  Age: 66 Year
  Sex: Female

DRUGS (3)
  1. PANTOPRAZOLE SODIUM [Suspect]
     Dosage: ORAL
     Route: 048
  2. PLANTABEN (ISPAGHULA HUSK) [Concomitant]
  3. SYNTHROID [Concomitant]

REACTIONS (1)
  - BLOOD SODIUM DECREASED [None]
